FAERS Safety Report 5824788-8 (Version None)
Quarter: 2008Q3

REPORT INFORMATION
  Report Type: 
  Country: None (occurrence: None)
  Receive Date: 20080728
  Receipt Date: 20080721
  Transmission Date: 20090109
  Serious: Yes (Life-Threatening)
  Sender: FDA-Public Use
  Company Number: FR-ASTRAZENECA-2008CG01089

PATIENT
  Age: 30464 Day
  Sex: Female

DRUGS (12)
  1. TENORMIN [Suspect]
     Indication: HYPERTENSION
     Route: 048
  2. DIGITALINE NATIVELLE [Interacting]
     Indication: ATRIAL FIBRILLATION
     Route: 048
  3. LASIX [Concomitant]
     Indication: ISCHAEMIC CARDIOMYOPATHY
     Route: 048
  4. LEVOTHYROX [Concomitant]
     Route: 048
  5. EQUANIL [Concomitant]
     Route: 048
  6. NEURONTIN [Concomitant]
     Indication: EPILEPSY
     Route: 048
  7. KEPPRA [Concomitant]
     Indication: EPILEPSY
     Route: 048
  8. IRBESARTAN [Concomitant]
     Indication: HYPERTENSION
     Route: 048
  9. URBANYL [Concomitant]
     Indication: EPILEPSY
     Route: 048
     Dates: end: 20080411
  10. PREVISCAN [Concomitant]
     Indication: ATRIAL FIBRILLATION
     Route: 048
  11. ACETAMINOPHEN [Concomitant]
  12. FORLAX [Concomitant]

REACTIONS (4)
  - BRADYCARDIA [None]
  - DRUG INTERACTION [None]
  - OVERDOSE [None]
  - RENAL FAILURE [None]
